FAERS Safety Report 10729992 (Version 1)
Quarter: 2015Q1

REPORT INFORMATION
  Report Type: Spontaneous
  Country: DE (occurrence: DE)
  Receive Date: 20150122
  Receipt Date: 20150122
  Transmission Date: 20150721
  Serious: Yes (Life-Threatening)
  Sender: FDA-Public Use
  Company Number: DE-PFIZER INC-2015024999

PATIENT
  Age: 77 Year
  Sex: Female

DRUGS (3)
  1. LYRICA [Interacting]
     Active Substance: PREGABALIN
     Dosage: 100 MG, ALTERNATE DAY
  2. DIGITOXIN [Interacting]
     Active Substance: DIGITOXIN
  3. LYRICA [Suspect]
     Active Substance: PREGABALIN
     Indication: NEURALGIA
     Dosage: 100 MG, DAILY

REACTIONS (3)
  - Disturbance in attention [Unknown]
  - Confusional state [Unknown]
  - Drug interaction [Unknown]
